FAERS Safety Report 7590059-5 (Version None)
Quarter: 2011Q3

REPORT INFORMATION
  Report Type: 
  Country: None (occurrence: None)
  Receive Date: 20110705
  Receipt Date: 20110622
  Transmission Date: 20111222
  Serious: Yes (Life-Threatening, Hospitalization)
  Sender: FDA-Public Use
  Company Number: B0487871B

PATIENT
  Sex: Female
  Weight: 59.3 kg

DRUGS (4)
  1. TOPIRAMATE [Concomitant]
  2. CAPECITABINE [Suspect]
     Route: 048
     Dates: start: 20070910, end: 20071128
  3. LAPATINIB [Suspect]
     Route: 048
     Dates: start: 20070910, end: 20071205
  4. ERGOTAMINE [Suspect]
     Dosage: 1MG AS REQUIRED
     Route: 048

REACTIONS (3)
  - OEDEMA PERIPHERAL [None]
  - RENAL FAILURE ACUTE [None]
  - RETROPERITONEAL FIBROSIS [None]
